FAERS Safety Report 7822939-7 (Version None)
Quarter: 2011Q4

REPORT INFORMATION
  Report Type: 
  Country: None (occurrence: None)
  Receive Date: 20111018
  Receipt Date: 20110720
  Transmission Date: 20120403
  Serious: No
  Sender: FDA-Public Use
  Company Number: US-ASTRAZENECA-2010SE28735

PATIENT
  Age: 64 Year
  Sex: Male

DRUGS (3)
  1. SYMBICORT [Suspect]
     Indication: CHRONIC OBSTRUCTIVE PULMONARY DISEASE
     Dosage: AEROSOL; TWO TIMES A DAY
     Route: 055
     Dates: start: 20100303
  2. CLOTRIMAZOLE [Concomitant]
     Indication: CANDIDIASIS
     Route: 048
  3. ZITHROMAX [Concomitant]

REACTIONS (4)
  - MALAISE [None]
  - CARDIAC FAILURE CONGESTIVE [None]
  - CANDIDIASIS [None]
  - PNEUMONIA [None]
